FAERS Safety Report 6896332-8 (Version None)
Quarter: 2010Q3

REPORT INFORMATION
  Report Type: 
  Country: None (occurrence: None)
  Receive Date: 20100802
  Receipt Date: 20100726
  Transmission Date: 20110219
  Serious: Yes (Other)
  Sender: FDA-Public Use
  Company Number: US-AMGEN-KDL426978

PATIENT
  Sex: Female

DRUGS (9)
  1. PROLIA [Suspect]
     Indication: OSTEOPOROSIS POSTMENOPAUSAL
     Route: 058
  2. CITRACAL [Concomitant]
  3. VITAMIN D [Concomitant]
  4. MICARDIS [Concomitant]
  5. LEVOTHYROXINE SODIUM [Concomitant]
  6. PREDNISONE [Concomitant]
  7. PERCOCET [Concomitant]
  8. GABAPENTIN [Concomitant]
  9. ACTONEL [Concomitant]

REACTIONS (5)
  - ABDOMINAL DISCOMFORT [None]
  - DYSPNOEA [None]
  - INSOMNIA [None]
  - MALAISE [None]
  - NERVOUSNESS [None]
